FAERS Safety Report 9815294 (Version 4)
Quarter: 2015Q1

REPORT INFORMATION
  Report Type: Report from Study
  Country: CZ (occurrence: CZ)
  Receive Date: 20140114
  Receipt Date: 20150112
  Transmission Date: 20150721
  Serious: Yes (Hospitalization)
  Sender: FDA-Public Use
  Company Number: CZ-ROCHE-1330005

PATIENT
  Age: 65 Year
  Sex: Female
  Weight: 82.8 kg

DRUGS (23)
  1. HYDROCHLOROTHIAZIDE. [Concomitant]
     Active Substance: HYDROCHLOROTHIAZIDE
     Indication: HYPERTENSION
     Route: 065
     Dates: end: 20140109
  2. FRAXIPARIN [Concomitant]
     Active Substance: NADROPARIN CALCIUM
     Indication: VENTRICULAR FIBRILLATION
     Route: 065
     Dates: end: 20140109
  3. LETROX [Concomitant]
     Indication: GOITRE
  4. CANESTEN [Concomitant]
     Active Substance: CLOTRIMAZOLE
     Indication: VAGINAL INFECTION
     Route: 065
     Dates: start: 201312, end: 201312
  5. PROPANORM [Concomitant]
     Active Substance: PROPAFENONE
     Indication: VENTRICULAR FIBRILLATION
  6. DOXORUBICIN [Suspect]
     Active Substance: DOXORUBICIN
     Indication: DIFFUSE LARGE B-CELL LYMPHOMA
     Dosage: DATE OF MOST RECENT DOSE PRIOR TO SAE:11/DEC/2013
     Route: 042
     Dates: start: 20131211
  7. HYDROCORTISON FOR INJECTION [Concomitant]
     Indication: CHILLS
     Route: 065
     Dates: start: 20131211, end: 20131211
  8. ZOLPIDEM [Concomitant]
     Active Substance: ZOLPIDEM\ZOLPIDEM TARTRATE
     Indication: INSOMNIA
     Route: 065
     Dates: start: 20131218
  9. MILURIT [Concomitant]
     Active Substance: ALLOPURINOL
     Route: 065
     Dates: start: 20131211
  10. SORTIS [Concomitant]
     Active Substance: ATORVASTATIN
     Indication: HYPERLIPIDAEMIA
  11. TOLURA [Concomitant]
     Indication: HYPERTENSION
  12. AGEN (CZECH REPUBLIC) [Concomitant]
     Indication: HYPERTENSION
     Route: 065
     Dates: end: 20140109
  13. QUAMATEL [Concomitant]
     Indication: DYSPEPSIA
     Route: 065
     Dates: start: 20131211
  14. KYTRIL [Concomitant]
     Active Substance: GRANISETRON HYDROCHLORIDE
     Indication: PROPHYLAXIS
     Route: 065
     Dates: start: 20131211
  15. VINCRISTINE [Suspect]
     Active Substance: VINCRISTINE
     Indication: DIFFUSE LARGE B-CELL LYMPHOMA
     Dosage: DATE OF MOST RECENT DOSE PRIOR TO SAE:11/DEC/2013
     Route: 050
     Dates: start: 20131211
  16. XALATAN [Concomitant]
     Active Substance: LATANOPROST
     Indication: GLAUCOMA
  17. COTRIMOXAZOLE [Concomitant]
     Active Substance: SULFAMETHOXAZOLE\TRIMETHOPRIM
     Indication: INFECTION PROPHYLAXIS
     Route: 065
     Dates: start: 20131211
  18. CYNT (CZECH REPUBLIC) [Concomitant]
     Indication: HYPERTENSION
  19. HYDROCORTISON FOR INJECTION [Concomitant]
     Indication: OROPHARYNGEAL PAIN
  20. IBUPROFEN. [Concomitant]
     Active Substance: IBUPROFEN
     Indication: BONE PAIN
     Route: 065
     Dates: start: 20131220
  21. OBINUTUZUMAB [Suspect]
     Active Substance: OBINUTUZUMAB
     Indication: DIFFUSE LARGE B-CELL LYMPHOMA
     Dosage: MOST RECENT DOSE WAS ON 18/DEC/2013 AT A DOSE VOLUME 250 ML AND CONCENTRATION 4MG/KG
     Route: 042
     Dates: start: 20131211
  22. CYCLOPHOSPHAMIDE. [Suspect]
     Active Substance: CYCLOPHOSPHAMIDE
     Indication: DIFFUSE LARGE B-CELL LYMPHOMA
     Dosage: DATE OF MOST RECENT DOSE PRIOR TO SAE:11/DEC/2013
     Route: 042
     Dates: start: 20131211
  23. PREDNISONE. [Suspect]
     Active Substance: PREDNISONE
     Indication: DIFFUSE LARGE B-CELL LYMPHOMA
     Dosage: DATE OF MOST RECENT DOSE PRIOR TO SAE:11/DEC/2013
     Route: 048
     Dates: start: 20131211

REACTIONS (1)
  - Ventricular flutter [Recovered/Resolved with Sequelae]

NARRATIVE: CASE EVENT DATE: 20131220
